FAERS Safety Report 21595877 (Version 3)
Quarter: 2022Q4

REPORT INFORMATION
  Report Type: Report from Study
  Country: FR (occurrence: FR)
  Receive Date: 20221115
  Receipt Date: 20221128
  Transmission Date: 20230113
  Serious: Yes (Death, Hospitalization)
  Sender: FDA-Public Use
  Company Number: FR-INSMED, INC.-2022-03088-FR

PATIENT
  Sex: Female

DRUGS (1)
  1. ARIKAYCE [Suspect]
     Active Substance: AMIKACIN
     Indication: Mycobacterial infection
     Dosage: 590 MILLIGRAM, QD
     Route: 055
     Dates: start: 20221014, end: 202211

REACTIONS (8)
  - Cerebrovascular accident [Unknown]
  - Death [Fatal]
  - Hospitalisation [Unknown]
  - Rehabilitation therapy [Unknown]
  - Dysstasia [Unknown]
  - Dizziness [Unknown]
  - Fatigue [Unknown]
  - Therapy interrupted [Unknown]

NARRATIVE: CASE EVENT DATE: 20220101
